FAERS Safety Report 26072291 (Version 2)
Quarter: 2025Q4

REPORT INFORMATION
  Report Type: Spontaneous
  Country: CA (occurrence: CA)
  Receive Date: 20251120
  Receipt Date: 20251218
  Transmission Date: 20260118
  Serious: Yes (Other)
  Sender: NOVO NORDISK
  Company Number: None

PATIENT
  Age: 2 Year
  Sex: Male

DRUGS (1)
  1. NORDITROPIN [Suspect]
     Active Substance: SOMATROPIN
     Indication: Growth hormone deficiency
     Dosage: 0.3 MG (1.0 DOSAGE FORMS)
     Route: 058

REACTIONS (3)
  - Adenoidectomy [Recovered/Resolved]
  - Obstructive sleep apnoea syndrome [Recovered/Resolved]
  - Otitis media [Recovered/Resolved]
